FAERS Safety Report 4371266-1 (Version None)
Quarter: 2004Q2

REPORT INFORMATION
  Report Type: 
  Country: None (occurrence: None)
  Receive Date: 20040604
  Receipt Date: 20040526
  Transmission Date: 20050107
  Serious: Yes (Hospitalization)
  Sender: FDA-Public Use
  Company Number: NZ-MERCK-0405NZL00025

PATIENT
  Sex: Female

DRUGS (6)
  1. FOSAMAX [Suspect]
     Route: 048
     Dates: start: 20030601, end: 20040101
  2. FOSAMAX [Suspect]
     Route: 048
     Dates: start: 20040101, end: 20040519
  3. CALCITRIOL [Concomitant]
     Route: 065
  4. DIGOXIN [Concomitant]
     Route: 065
  5. PROPRANOLOL HYDROCHLORIDE [Concomitant]
     Route: 065
  6. WARFARIN [Concomitant]
     Route: 065

REACTIONS (6)
  - DIARRHOEA [None]
  - ECZEMA [None]
  - INFECTION [None]
  - OEDEMA PERIPHERAL [None]
  - SKIN ULCER [None]
  - VOMITING [None]
